FAERS Safety Report 8895601 (Version 2)
Quarter: 2012Q4

REPORT INFORMATION
  Report Type: Report from Study
  Country: CA (occurrence: CA)
  Receive Date: 20121108
  Receipt Date: 20121116
  Transmission Date: 20130627
  Serious: Yes (Death, Hospitalization, Other)
  Sender: FDA-Public Use
  Company Number: CA-ABBOTT-12P-028-1002019-00

PATIENT
  Sex: Male

DRUGS (1)
  1. LUPRON DEPOT [Suspect]
     Indication: PROSTATE CANCER
     Dosage: 30MG
     Route: 050
     Dates: start: 20061219

REACTIONS (5)
  - Death [Fatal]
  - Haemoglobin decreased [Unknown]
  - Gastric cancer [Unknown]
  - Hepatic cancer [Unknown]
  - Oesophageal carcinoma [Unknown]
